FAERS Safety Report 7416909-0 (Version None)
Quarter: 2011Q2

REPORT INFORMATION
  Report Type: 
  Country: None (occurrence: None)
  Receive Date: 20110415
  Receipt Date: 20110408
  Transmission Date: 20111010
  Serious: Yes (Other)
  Sender: FDA-Public Use
  Company Number: US-JNJFOC-20110404939

PATIENT
  Age: 4 Decade
  Sex: Female

DRUGS (1)
  1. NUCYNTA [Suspect]
     Indication: PROCEDURAL PAIN
     Dosage: ONE EVERY 4 TO 6 HOURS
     Route: 048

REACTIONS (2)
  - NAUSEA [None]
  - CONFUSIONAL STATE [None]
